FAERS Safety Report 5778561-X (Version None)
Quarter: 2008Q2

REPORT INFORMATION
  Report Type: 
  Country: None (occurrence: None)
  Receive Date: 20080618
  Receipt Date: 20080618
  Transmission Date: 20081010
  Serious: Yes (Other)
  Sender: FDA-Public Use
  Company Number: None

PATIENT
  Age: 46 Year
  Sex: Female
  Weight: 65.318 kg

DRUGS (2)
  1. LYRICA [Suspect]
     Indication: MYALGIA
     Dosage: 25 MG 1 CAPSULE DAILY PO
     Route: 048
     Dates: start: 20080612, end: 20080617
  2. LYRICA [Suspect]
     Indication: PARAESTHESIA
     Dosage: 25 MG 1 CAPSULE DAILY PO
     Route: 048
     Dates: start: 20080612, end: 20080617

REACTIONS (5)
  - HEART RATE INCREASED [None]
  - INSOMNIA [None]
  - OEDEMA PERIPHERAL [None]
  - SWELLING FACE [None]
  - TINNITUS [None]
